FAERS Safety Report 5301905-X (Version None)
Quarter: 2007Q2

REPORT INFORMATION
  Report Type: 
  Country: None (occurrence: None)
  Receive Date: 20070419
  Receipt Date: 20070406
  Transmission Date: 20071010
  Serious: Yes (Other)
  Sender: FDA-Public Use
  Company Number: PHBS2007BR06271

PATIENT
  Sex: Male

DRUGS (1)
  1. EXELON [Suspect]
     Route: 065

REACTIONS (1)
  - CEREBROVASCULAR DISORDER [None]
